FAERS Safety Report 12523390 (Version 1)
Quarter: 2016Q3

REPORT INFORMATION
  Report Type: Other
  Country: SI (occurrence: SK)
  Receive Date: 20160703
  Receipt Date: 20160703
  Transmission Date: 20161109
  Serious: Yes (Hospitalization)
  Sender: FDA-Public Use
  Company Number: SK-DEXPHARM-20161250

PATIENT
  Age: 9 Day
  Sex: Female
  Weight: 1.37 kg

DRUGS (2)
  1. ALCOHOL 70 % [Suspect]
     Active Substance: ALCOHOL
     Dosage: 2.5 ML
     Route: 017
  2. CHLORHEXIDINE 0.5% [Suspect]
     Active Substance: CHLORHEXIDINE
     Dosage: 2.5 ML
     Route: 017

REACTIONS (6)
  - Haemolysis [Recovered/Resolved]
  - Hyperbilirubinaemia [Recovered/Resolved]
  - Cardiovascular disorder [Recovered/Resolved]
  - Haematuria [Recovered/Resolved]
  - Respiratory distress [Recovered/Resolved]
  - Accidental exposure to product [Recovered/Resolved]
